FAERS Safety Report 24930485 (Version 2)
Quarter: 2025Q1

REPORT INFORMATION
  Report Type: Report from Study
  Country: JP (occurrence: JP)
  Receive Date: 20250205
  Receipt Date: 20250313
  Transmission Date: 20250409
  Serious: Yes (Death)
  Sender: EISAI
  Company Number: JP-Eisai-202110594_LEN-HCC_P_1

PATIENT
  Age: 72 Year
  Sex: Male

DRUGS (3)
  1. LENVATINIB [Suspect]
     Active Substance: LENVATINIB
     Indication: Hepatocellular carcinoma
     Dates: start: 20210425, end: 20210425
  2. LENVATINIB [Suspect]
     Active Substance: LENVATINIB
     Dates: start: 20210426, end: 20210519
  3. LENVATINIB [Suspect]
     Active Substance: LENVATINIB
     Dates: start: 20210520, end: 20210603

REACTIONS (1)
  - Pneumonia [Fatal]

NARRATIVE: CASE EVENT DATE: 20210603
